FAERS Safety Report 6037332-X (Version None)
Quarter: 2009Q1

REPORT INFORMATION
  Report Type: 
  Country: None (occurrence: None)
  Receive Date: 20090114
  Receipt Date: 20090107
  Transmission Date: 20090719
  Serious: Yes (Death, Other)
  Sender: FDA-Public Use
  Company Number: ES-ELI_LILLY_AND_COMPANY-ES200804007273

PATIENT
  Age: 56 Year
  Sex: Male

DRUGS (2)
  1. XIGRIS [Suspect]
     Indication: SEPSIS
     Dosage: 0.024 MG/KG, EVERY HOUR
     Route: 065
     Dates: start: 20080429, end: 20080503
  2. HEPARIN [Concomitant]
     Indication: SEPSIS

REACTIONS (5)
  - ACTIVATED PARTIAL THROMBOPLASTIN TIME PROLONGED [None]
  - CEREBRAL HAEMORRHAGE [None]
  - EPISTAXIS [None]
  - THROMBOCYTOPENIA [None]
  - WOUND HAEMORRHAGE [None]
